FAERS Safety Report 24427232 (Version 1)
Quarter: 2024Q4

REPORT INFORMATION
  Report Type: Spontaneous
  Country: US (occurrence: None)
  Receive Date: 20241011
  Receipt Date: 20241011
  Transmission Date: 20250115
  Serious: Yes (Hospitalization)
  Sender: Public
  Company Number: None

PATIENT
  Sex: Male

DRUGS (1)
  1. WINREVAIR [Suspect]
     Active Substance: SOTATERCEPT-CSRK
     Dosage: OTHER FREQUENCY : EVERY3WEEKS;?
     Route: 058
     Dates: start: 202406

REACTIONS (8)
  - Cardiac failure [None]
  - Weight decreased [None]
  - Flushing [None]
  - Headache [None]
  - Pain in jaw [None]
  - Pain in extremity [None]
  - Influenza [None]
  - Sleep disorder [None]
